FAERS Safety Report 8265271-2 (Version None)
Quarter: 2012Q2

REPORT INFORMATION
  Report Type: 
  Country: None (occurrence: None)
  Receive Date: 20120406
  Receipt Date: 20120329
  Transmission Date: 20120825
  Serious: Yes (Hospitalization)
  Sender: FDA-Public Use
  Company Number: BR-AMGEN-BRASP2012021647

PATIENT
  Age: 75 Year
  Sex: Female
  Weight: 44 kg

DRUGS (8)
  1. OMEPRAZOLE [Concomitant]
     Dosage: 20 MG, 1X/DAY
  2. ZOLEDRONOC ACID [Concomitant]
     Indication: OSTEOPOROSIS
     Dosage: 4 MG, CYCLIC (ONCE A YEAR)
  3. ENBREL [Suspect]
     Indication: RHEUMATOID ARTHRITIS
     Dosage: 50 MG, ONCE WEEKLY
     Route: 058
  4. PREDNISONE [Concomitant]
     Dosage: 5 MG, 1X/DAY
  5. ARAVA [Concomitant]
     Dosage: 20 MG, 1X/DAY
  6. MELOXICAM [Concomitant]
     Dosage: 15 MG, 1X/DAY
  7. FOLIC ACID [Concomitant]
     Dosage: 1 TABLET (UNKNOWN DOSE) DAILY
  8. DIOVAN [Concomitant]
     Indication: BLOOD PRESSURE
     Dosage: UNK

REACTIONS (2)
  - ARTHRALGIA [None]
  - BURNS THIRD DEGREE [None]
